FAERS Safety Report 6180114-9 (Version None)
Quarter: 2009Q2

REPORT INFORMATION
  Report Type: 
  Country: None (occurrence: None)
  Receive Date: 20090505
  Receipt Date: 20080709
  Transmission Date: 20091009
  Serious: No
  Sender: FDA-Public Use
  Company Number: AT-BAYER-200821370GPV

PATIENT
  Sex: Female

DRUGS (1)
  1. BETAFERON [Suspect]
     Indication: MULTIPLE SCLEROSIS
     Route: 058
     Dates: start: 20080620

REACTIONS (1)
  - NO ADVERSE EVENT [None]
